FAERS Safety Report 5095485-4 (Version None)
Quarter: 2006Q3

REPORT INFORMATION
  Report Type: 
  Country: None (occurrence: None)
  Receive Date: 20060901
  Receipt Date: 20060901
  Transmission Date: 20061208
  Serious: Yes (Hospitalization)
  Sender: FDA-Public Use
  Company Number: None

PATIENT
  Age: 6 Year
  Sex: Female
  Weight: 28.6 kg

DRUGS (2)
  1. GAMMAGARD [Suspect]
     Indication: BONE MARROW TRANSPLANT
     Dosage: 7.5 GMS/75 ML Q 3 WEEKS IV
     Route: 042
     Dates: start: 20060801, end: 20060801
  2. GAMMAGARD [Suspect]
     Indication: BONE MARROW TRANSPLANT
     Dosage: 7.5 GMS/75 ML Q 3 WEEKS IV
     Route: 042
     Dates: start: 20060817, end: 20060817

REACTIONS (3)
  - CHILLS [None]
  - INFUSION RELATED REACTION [None]
  - TREMOR [None]
